FAERS Safety Report 25146561 (Version 2)
Quarter: 2025Q2

REPORT INFORMATION
  Report Type: Spontaneous
  Country: US (occurrence: US)
  Receive Date: 20250401
  Receipt Date: 20250411
  Transmission Date: 20250717
  Serious: No
  Sender: VERITY PHARMACEUTICALS
  Company Number: US-VER-202500030

PATIENT
  Age: 29 Year
  Sex: Male

DRUGS (1)
  1. TLANDO [Suspect]
     Active Substance: TESTOSTERONE UNDECANOATE
     Indication: Product used for unknown indication
     Route: 065

REACTIONS (1)
  - Rash [Unknown]
